FAERS Safety Report 16819432 (Version 1)
Quarter: 2019Q3

REPORT INFORMATION
  Report Type: Spontaneous
  Country: FR (occurrence: FR)
  Receive Date: 20190917
  Receipt Date: 20190917
  Transmission Date: 20191005
  Serious: Yes (Other)
  Sender: FDA-Public Use
  Company Number: FR-JNJFOC-20190912478

PATIENT
  Age: 15 Year
  Sex: Male

DRUGS (2)
  1. CHOLURSO [Concomitant]
     Active Substance: URSODIOL
     Indication: CROHN^S DISEASE
     Route: 065
  2. STELARA [Suspect]
     Active Substance: USTEKINUMAB
     Indication: CROHN^S DISEASE
     Dosage: 260 MG/CURE IN TOTAL
     Route: 042
     Dates: start: 20180824

REACTIONS (2)
  - Xerosis [Not Recovered/Not Resolved]
  - Folliculitis [Not Recovered/Not Resolved]

NARRATIVE: CASE EVENT DATE: 2018
